FAERS Safety Report 15912235 (Version 1)
Quarter: 2019Q1

REPORT INFORMATION
  Report Type: Spontaneous
  Country: US (occurrence: US)
  Receive Date: 20190204
  Receipt Date: 20190204
  Transmission Date: 20190417
  Serious: Yes (Other)
  Sender: FDA-Public Use
  Company Number: US-ABBVIE-18K-163-2459461-00

PATIENT
  Sex: Female

DRUGS (1)
  1. HUMIRA [Suspect]
     Active Substance: ADALIMUMAB
     Indication: HIDRADENITIS
     Route: 058
     Dates: start: 2015

REACTIONS (12)
  - Glucose tolerance impaired [Unknown]
  - Cellulitis [Unknown]
  - Sepsis [Unknown]
  - Exocrine pancreatic function test abnormal [Unknown]
  - Gestational diabetes [Unknown]
  - Exposure during pregnancy [Unknown]
  - Diabetes mellitus [Unknown]
  - Wound infection [Unknown]
  - Insulin resistance [Unknown]
  - Malaise [Unknown]
  - Infection [Unknown]
  - Staphylococcal infection [Unknown]
